FAERS Safety Report 5742578-1 (Version None)
Quarter: 2008Q2

REPORT INFORMATION
  Report Type: 
  Country: None (occurrence: None)
  Receive Date: 20080515
  Receipt Date: 20080501
  Transmission Date: 20081010
  Serious: Yes (Hospitalization)
  Sender: FDA-Public Use
  Company Number: 230410J08CAN

PATIENT
  Age: 57 Year
  Sex: Male

DRUGS (3)
  1. REBIF [Suspect]
     Indication: MULTIPLE SCLEROSIS
     Dosage: 44 MCG
     Dates: start: 20080130
  2. ANTIHYPERTENSIVES [Concomitant]
  3. ANTIEPILEPTICS [Concomitant]

REACTIONS (1)
  - CEREBROVASCULAR ACCIDENT [None]
